FAERS Safety Report 12313033 (Version 1)
Quarter: 2016Q2

REPORT INFORMATION
  Report Type: Spontaneous
  Country: US (occurrence: US)
  Receive Date: 20160428
  Receipt Date: 20160428
  Transmission Date: 20160815
  Serious: No
  Sender: FDA-Public Use
  Company Number: US-BAYER-2016-077610

PATIENT
  Age: 43 Year
  Sex: Female
  Weight: 99.77 kg

DRUGS (1)
  1. CLARITIN REDITABS [Suspect]
     Active Substance: LORATADINE
     Indication: SEASONAL ALLERGY
     Dosage: 1 DF, QD (EVERY 24 HOURS)
     Route: 048
     Dates: start: 2013

REACTIONS (2)
  - Drug ineffective [None]
  - Product taste abnormal [None]
